FAERS Safety Report 6370050-7 (Version None)
Quarter: 2009Q3

REPORT INFORMATION
  Report Type: 
  Country: None (occurrence: None)
  Receive Date: 20090923
  Receipt Date: 20070816
  Transmission Date: 20100115
  Serious: No
  Sender: FDA-Public Use
  Company Number: US-ASTRAZENECA-2006UW20483

PATIENT
  Age: 13735 Day
  Sex: Male
  Weight: 117.9 kg

DRUGS (13)
  1. SEROQUEL [Suspect]
     Dosage: 25-400MG
     Route: 048
     Dates: start: 20011212
  2. ATENOLOL [Concomitant]
  3. CLONAZEPAM [Concomitant]
  4. RISPERDAL [Concomitant]
  5. CITALOPRAM HYDROBROMIDE [Concomitant]
  6. MIRTAZAPINE [Concomitant]
  7. LEXAPRO [Concomitant]
  8. ZYPREXA [Concomitant]
  9. HALOPERIDOL DECANOATE [Concomitant]
  10. LOTENSIN [Concomitant]
  11. TRAZODONE [Concomitant]
  12. HYDROCHLOROTHIAZIDE [Concomitant]
  13. ATIVAN [Concomitant]

REACTIONS (6)
  - ANXIETY [None]
  - DEPRESSION [None]
  - DIABETES MELLITUS [None]
  - FURUNCLE [None]
  - INSOMNIA [None]
  - PSYCHOTIC DISORDER [None]
